FAERS Safety Report 5067855-1 (Version None)
Quarter: 2006Q3

REPORT INFORMATION
  Report Type: 
  Country: None (occurrence: None)
  Receive Date: 20060728
  Receipt Date: 20060710
  Transmission Date: 20061208
  Serious: Yes (Other)
  Sender: FDA-Public Use
  Company Number: BR200607001523

PATIENT
  Age: 28 Year
  Sex: Male

DRUGS (1)
  1. ZYPREXA [Suspect]
     Indication: SCHIZOPHRENIA, PARANOID TYPE
     Dosage: 10 MG DAILY (1/D) ORAL
     Route: 048
     Dates: start: 19980101

REACTIONS (2)
  - NON-HODGKIN'S LYMPHOMA [None]
  - SYNCOPE [None]
